FAERS Safety Report 8108756-1 (Version None)
Quarter: 2012Q1

REPORT INFORMATION
  Report Type: 
  Country: None (occurrence: None)
  Receive Date: 20120202
  Receipt Date: 20120125
  Transmission Date: 20120608
  Serious: Yes (Hospitalization)
  Sender: FDA-Public Use
  Company Number: PHHY2012GB006868

PATIENT
  Sex: Male

DRUGS (2)
  1. VALSARTAN [Suspect]
     Dosage: UNK
  2. PROPRANOLOL [Suspect]
     Dosage: 80 MG, DAILY
     Dates: start: 20111014

REACTIONS (3)
  - PRODUCT LABEL ON WRONG PRODUCT [None]
  - CARDIAC ARREST [None]
  - ATRIOVENTRICULAR BLOCK COMPLETE [None]
